FAERS Safety Report 25325201 (Version 2)
Quarter: 2025Q2

REPORT INFORMATION
  Report Type: Spontaneous
  Country: US (occurrence: US)
  Receive Date: 20250516
  Receipt Date: 20250611
  Transmission Date: 20250717
  Serious: No
  Sender: BAYER HEALTHCARE PHARMACEUTICALS INC.
  Company Number: US-BAYER-2025A065516

PATIENT
  Age: 41 Year
  Sex: Female

DRUGS (1)
  1. MIRENA [Suspect]
     Active Substance: LEVONORGESTREL
     Indication: Contraception
     Dosage: 20?G/DAY
     Route: 015
     Dates: start: 20250428

REACTIONS (10)
  - Therapeutic response unexpected [None]
  - Loss of personal independence in daily activities [None]
  - Abdominal pain lower [None]
  - Infection [None]
  - Fatigue [None]
  - Nausea [None]
  - Vomiting [None]
  - Upper respiratory tract infection [None]
  - Nasal congestion [None]
  - Vaginal haemorrhage [None]

NARRATIVE: CASE EVENT DATE: 20250401
